FAERS Safety Report 8614620 (Version 5)
Quarter: 2012Q4

REPORT INFORMATION
  Report Type: 
  Country: JP (occurrence: JP)
  Receive Date: 20120614
  Receipt Date: 20120907
  Transmission Date: 20130627
  Serious: Yes (Hospitalization)
  Sender: FDA-Public Use
  Company Number: JP-ABBOTT-12P-087-0942788-00

PATIENT
  Age: 77 None
  Sex: Female
  Weight: 41.1 kg

DRUGS (12)
  1. HUMIRA 40 MG/ 0.8 ML PRE-FILLED SYRINGE [Suspect]
     Indication: RHEUMATOID ARTHRITIS
     Route: 058
     Dates: start: 20090225, end: 20120601
  2. ACETAMINOPHEN\CAFFEINE [Suspect]
     Indication: DENTAL CARE
     Route: 048
     Dates: start: 20120208, end: 20120530
  3. PREDNISOLONE [Concomitant]
     Indication: RHEUMATOID ARTHRITIS
     Route: 048
  4. RABEPRAZOLE SODIUM [Concomitant]
     Indication: RHEUMATOID ARTHRITIS
     Route: 048
  5. LOXOPROFEN SODIUM HYDRATE [Concomitant]
     Indication: RHEUMATOID ARTHRITIS
     Route: 048
  6. ALFACALCIDOL [Concomitant]
     Indication: RHEUMATOID ARTHRITIS
     Route: 048
  7. MOSAPRIDE CITRATE HYDRATE [Concomitant]
     Indication: RHEUMATOID ARTHRITIS
     Route: 048
  8. FUDOSTEINE [Concomitant]
     Indication: RHEUMATOID ARTHRITIS
     Route: 048
  9. PILOCARPINE HYDROCHLORIDE [Concomitant]
     Indication: SJOGREN^S SYNDROME
     Route: 048
  10. VITAMIN B COMPLEX [Concomitant]
     Indication: RHEUMATOID ARTHRITIS
     Route: 048
  11. ASCORBIC ACID/CALCIUM PANTOTHENATE [Concomitant]
     Indication: RHEUMATOID ARTHRITIS
     Route: 048
  12. CLENBUTEROL HYDROCHLORIDE [Concomitant]
     Indication: STRESS URINARY INCONTINENCE
     Route: 048

REACTIONS (5)
  - Dermatitis bullous [Recovered/Resolved]
  - Biopsy skin abnormal [Unknown]
  - Blood immunoglobulin M increased [Unknown]
  - Complement factor C3 increased [Unknown]
  - Blister [Unknown]
